FAERS Safety Report 9462059 (Version 1)
Quarter: 2013Q3

REPORT INFORMATION
  Report Type: Spontaneous
  Country: CN (occurrence: CN)
  Receive Date: 20130816
  Receipt Date: 20130816
  Transmission Date: 20140515
  Serious: Yes (Other)
  Sender: FDA-Public Use
  Company Number: CN-PFIZER INC-2013234658

PATIENT
  Age: 60 Year
  Sex: Male
  Weight: 75 kg

DRUGS (3)
  1. CELEBREX [Suspect]
     Indication: ARTHRITIS REACTIVE
     Dosage: 200 MG, 2X/DAY
     Route: 048
     Dates: start: 20121024, end: 20121031
  2. SULFASALAZINE [Concomitant]
  3. PREDNISONE [Concomitant]

REACTIONS (1)
  - Hepatocellular injury [Recovering/Resolving]
